FAERS Safety Report 8293245-4 (Version None)
Quarter: 2012Q2

REPORT INFORMATION
  Report Type: 
  Country: None (occurrence: None)
  Receive Date: 20120417
  Receipt Date: 20120222
  Transmission Date: 20120825
  Serious: No
  Sender: FDA-Public Use
  Company Number: US-ASTRAZENECA-2012SE12567

PATIENT
  Age: 76 Year
  Sex: Male
  Weight: 111.1 kg

DRUGS (11)
  1. NEXIUM [Suspect]
     Route: 048
  2. OXYBUDYNIN CHLORIDE [Concomitant]
  3. ASPIRIN [Concomitant]
  4. RISPERIDONE [Concomitant]
  5. GLIMETIRIDE [Concomitant]
  6. CETIRIZINE HCL [Concomitant]
  7. SEROQUEL [Suspect]
     Indication: DEPRESSION
     Route: 048
  8. ALLOPURINOL [Concomitant]
  9. MAGNESIUM OXIDE [Concomitant]
  10. MULTI-VITAMINS [Concomitant]
  11. ATENOLOL [Concomitant]

REACTIONS (4)
  - CONDITION AGGRAVATED [None]
  - IRRITABILITY [None]
  - DRUG DOSE OMISSION [None]
  - INSOMNIA [None]
